FAERS Safety Report 6104608-7 (Version None)
Quarter: 2009Q1

REPORT INFORMATION
  Report Type: 
  Country: None (occurrence: None)
  Receive Date: 20090303
  Receipt Date: 20090220
  Transmission Date: 20090719
  Serious: Yes (Other)
  Sender: FDA-Public Use
  Company Number: 2009AL001076

PATIENT
  Sex: Male

DRUGS (1)
  1. DIGOXIN [Suspect]
     Dosage: PO
     Route: 048

REACTIONS (6)
  - ANXIETY [None]
  - ECONOMIC PROBLEM [None]
  - GENERAL PHYSICAL CONDITION ABNORMAL [None]
  - IMPAIRED WORK ABILITY [None]
  - MULTIPLE INJURIES [None]
  - PAIN [None]
